FAERS Safety Report 10010972 (Version 3)
Quarter: 2014Q2

REPORT INFORMATION
  Report Type: Spontaneous
  Country: US (occurrence: US)
  Receive Date: 20140314
  Receipt Date: 20140411
  Transmission Date: 20141212
  Serious: Yes (Hospitalization, Other)
  Sender: FDA-Public Use
  Company Number: US-BAXTER-2014BAX012828

PATIENT
  Sex: Male

DRUGS (1)
  1. DIANEAL LOW CALCIUM [Suspect]
     Indication: PERITONEAL DIALYSIS
     Route: 033
     Dates: end: 20140313

REACTIONS (4)
  - Incarcerated hernia [Recovered/Resolved]
  - Peritonitis [Recovered/Resolved]
  - Catheter site extravasation [Unknown]
  - Post procedural infection [Recovered/Resolved]
